FAERS Safety Report 5143424-X (Version None)
Quarter: 2006Q4

REPORT INFORMATION
  Report Type: 
  Country: None (occurrence: None)
  Receive Date: 20061103
  Receipt Date: 20061019
  Transmission Date: 20070319
  Serious: Yes (Life-Threatening, Hospitalization, Other)
  Sender: FDA-Public Use
  Company Number: US-ELI_LILLY_AND_COMPANY-US200610003558

PATIENT
  Age: 38 Year
  Sex: Female

DRUGS (25)
  1. CYMBALTA [Suspect]
     Indication: PSYCHIATRIC SYMPTOM
     Dosage: 60 MG, UNK
     Dates: start: 20060717, end: 20060922
  2. CYMBALTA [Suspect]
     Dosage: 90 MG, UNK
     Dates: start: 20060923, end: 20060928
  3. SIMVASTATIN [Concomitant]
  4. LEVOTHYROXINE SODIUM [Concomitant]
  5. APAP TAB [Concomitant]
  6. ALLOPURINOL [Concomitant]
  7. WARFARIN SODIUM [Concomitant]
  8. ANUSOL HC [Concomitant]
  9. HYDROCORTISONE [Concomitant]
  10. HYDROXYZINE [Concomitant]
  11. LACTOBACILLUS ACIDOPHILUS [Concomitant]
  12. ACCUZYME [Concomitant]
  13. METRONIDAZOLE [Concomitant]
  14. VANCOMYCIN [Concomitant]
  15. PIPERACILLIN W/TAZOBACTAM [Concomitant]
  16. NOREPINEPHRINE HYDROCHLORIDE [Concomitant]
     Route: 042
  17. NOVOLOG [Concomitant]
  18. TOBRAMYCIN [Concomitant]
  19. SODIUM CHLORIDE [Concomitant]
  20. HEPARIN [Concomitant]
  21. NEXIUM [Concomitant]
  22. NYSTATIN [Concomitant]
     Route: 061
  23. MORPHINE [Concomitant]
  24. BALMEX OINTMENT [Concomitant]
  25. MULTIVITAMIN ^LAPPE^ [Concomitant]

REACTIONS (4)
  - METABOLIC ACIDOSIS [None]
  - RENAL FAILURE ACUTE [None]
  - RHABDOMYOLYSIS [None]
  - SEROTONIN SYNDROME [None]
